FAERS Safety Report 6286758-8 (Version None)
Quarter: 2009Q3

REPORT INFORMATION
  Report Type: 
  Country: None (occurrence: None)
  Receive Date: 20090728
  Receipt Date: 20090727
  Transmission Date: 20100115
  Serious: Yes (Hospitalization)
  Sender: FDA-Public Use
  Company Number: US-BRISTOL-MYERS SQUIBB COMPANY-14674279

PATIENT
  Age: 1 Decade
  Sex: Female

DRUGS (2)
  1. ABILIFY [Suspect]
     Dosage: FOR 3 TO 4 YRS
  2. METFORMIN HCL [Suspect]
     Indication: WEIGHT INCREASED

REACTIONS (1)
  - RENAL FAILURE ACUTE [None]
